FAERS Safety Report 4761240-5 (Version None)
Quarter: 2005Q3

REPORT INFORMATION
  Report Type: 
  Country: None (occurrence: None)
  Receive Date: 20050902
  Receipt Date: 20050902
  Transmission Date: 20060218
  Serious: Yes (Hospitalization)
  Sender: FDA-Public Use
  Company Number: None

PATIENT
  Age: 13 Year
  Sex: Female
  Weight: 45 kg

DRUGS (6)
  1. METHOTREXATE [Suspect]
     Indication: BONE SARCOMA
     Dosage: 17 GM IV OVER 4 H
     Route: 042
     Dates: start: 20050824
  2. KYTRIL [Concomitant]
  3. PEPCID [Concomitant]
  4. BICARBONATE + D5W [Concomitant]
  5. DEXAMETHASONE [Concomitant]
  6. PERCOCET [Concomitant]

REACTIONS (2)
  - BLOOD CREATININE INCREASED [None]
  - DRUG LEVEL INCREASED [None]
